FAERS Safety Report 5206734-3 (Version None)
Quarter: 2006Q4

REPORT INFORMATION
  Report Type: 
  Country: None (occurrence: None)
  Receive Date: 20061030
  Receipt Date: 20060919
  Transmission Date: 20070319
  Serious: No
  Sender: FDA-Public Use
  Company Number: 257069

PATIENT
  Age: 56 Year
  Sex: Male
  Weight: 54.4 kg

DRUGS (2)
  1. LEVEMIR [Suspect]
     Indication: DIABETES MELLITUS
     Dosage: 30-35 UNITS, QD, SUBCUTANEOUS
     Route: 058
     Dates: start: 20060201
  2. PRANDIN (REPAGLINIDE) TABLET [Concomitant]

REACTIONS (1)
  - BLOOD GLUCOSE INCREASED [None]
